FAERS Safety Report 7450658-8 (Version None)
Quarter: 2011Q2

REPORT INFORMATION
  Report Type: 
  Country: None (occurrence: None)
  Receive Date: 20110429
  Receipt Date: 20110429
  Transmission Date: 20111010
  Serious: Yes (Hospitalization)
  Sender: FDA-Public Use
  Company Number: None

PATIENT
  Sex: Female

DRUGS (1)
  1. AZITHROMYCIN [Suspect]
     Indication: BRONCHITIS
     Dosage: 2 TABS INITIAL MOUTH; 1 TAB DAILY
     Dates: start: 20110212

REACTIONS (2)
  - FAECAL INCONTINENCE [None]
  - VOMITING [None]
